FAERS Safety Report 6920300-0 (Version None)
Quarter: 2010Q3

REPORT INFORMATION
  Report Type: 
  Country: None (occurrence: None)
  Receive Date: 20100809
  Receipt Date: 20100726
  Transmission Date: 20110219
  Serious: Yes (Other)
  Sender: FDA-Public Use
  Company Number: A-US2005-10528

PATIENT
  Age: 72 Year
  Sex: Female

DRUGS (4)
  1. TRACLEER [Suspect]
     Indication: PULMONARY ARTERIAL HYPERTENSION
     Dosage: 125 MG, BID, ORAL ; ORAL
     Route: 048
     Dates: start: 20050501
  2. TRACLEER [Suspect]
     Indication: PULMONARY ARTERIAL HYPERTENSION
     Dosage: 125 MG, BID, ORAL ; ORAL
     Route: 048
     Dates: start: 20050625
  3. EPOPROSTENOL SODIUM [Suspect]
  4. COUMADIN [Concomitant]

REACTIONS (7)
  - DIARRHOEA [None]
  - HYPOACUSIS [None]
  - NASOPHARYNGITIS [None]
  - NEOPLASM SKIN [None]
  - PRURITUS [None]
  - SQUAMOUS CELL CARCINOMA [None]
  - VOMITING [None]
